FAERS Safety Report 6855073 (Version 10)
Quarter: 2012Q4

REPORT INFORMATION
  Report Type: Report from Study
  Country: CA (occurrence: CA)
  Receive Date: 20081216
  Receipt Date: 20120906
  Transmission Date: 20130627
  Serious: Yes (Hospitalization)
  Sender: FDA-Public Use
  Company Number: CA-BRISTOL-MYERS SQUIBB COMPANY-13950837

PATIENT
  Age: 34 Year
  Sex: Female

DRUGS (15)
  1. ORENCIA [Suspect]
     Indication: RHEUMATOID ARTHRITIS
     Dosage: 61;16Ot12Jn,9Jl,3Ag,6S,1Ot07,24Ja08,21F,20Mr,18Ap,19My,13Jn,11Jl,15Au,12Se,7Oct,4N,25N08,25N10,7Jl11
     Route: 042
     Dates: start: 20061018
  2. ORENCIA [Suspect]
     Indication: JUVENILE ARTHRITIS
     Dosage: 61;16Ot12Jn,9Jl,3Ag,6S,1Ot07,24Ja08,21F,20Mr,18Ap,19My,13Jn,11Jl,15Au,12Se,7Oct,4N,25N08,25N10,7Jl11
     Route: 042
     Dates: start: 20061018
  3. PREDNISONE [Concomitant]
  4. METOPROLOL [Concomitant]
  5. IMOVANE [Concomitant]
  6. CALCIUM [Concomitant]
  7. VITAMIN D [Concomitant]
  8. OXYCOCET [Concomitant]
  9. OXYCONTIN [Concomitant]
  10. TYLENOL NO 1 [Concomitant]
  11. GRAVOL [Concomitant]
  12. IMODIUM [Concomitant]
     Indication: MIGRAINE
  13. PARIET [Concomitant]
     Indication: MIGRAINE
  14. AXERT [Concomitant]
     Indication: MIGRAINE
  15. VITAMIN B [Concomitant]
     Dosage: Vitamin B 100

REACTIONS (20)
  - Urosepsis [Unknown]
  - Dehydration [Unknown]
  - Hypotension [Unknown]
  - Vomiting [Unknown]
  - Anaemia [Unknown]
  - Clostridium difficile infection [Recovering/Resolving]
  - Infection [Not Recovered/Not Resolved]
  - Pain [Recovered/Resolved]
  - Arthralgia [Recovered/Resolved]
  - Dysgeusia [Unknown]
  - Nausea [Unknown]
  - Abdominal discomfort [Unknown]
  - Malaise [Unknown]
  - Diarrhoea [Unknown]
  - Rash [Not Recovered/Not Resolved]
  - Pollakiuria [Recovered/Resolved]
  - Urine output increased [Recovered/Resolved]
  - Flank pain [Unknown]
  - Poor venous access [Unknown]
  - Drug ineffective [Unknown]
